FAERS Safety Report 5545826-6 (Version None)
Quarter: 2007Q4

REPORT INFORMATION
  Report Type: 
  Country: None (occurrence: None)
  Receive Date: 20071211
  Receipt Date: 20070716
  Transmission Date: 20080405
  Serious: No
  Sender: FDA-Public Use
  Company Number: US-ASTRAZENECA-2007UW16898

PATIENT

DRUGS (1)
  1. SYMBICORT [Suspect]
     Dosage: 4 INHALATIONS BID
     Route: 055

REACTIONS (2)
  - CHEST PAIN [None]
  - OVERDOSE [None]
